FAERS Safety Report 18076501 (Version 2)
Quarter: 2020Q3

REPORT INFORMATION
  Report Type: Report from Study
  Country: US (occurrence: US)
  Receive Date: 20200727
  Receipt Date: 20200731
  Transmission Date: 20201103
  Serious: Yes (Hospitalization, Other)
  Sender: FDA-Public Use
  Company Number: US-GILEAD-2020-0485010

PATIENT
  Age: 54 Year
  Sex: Female

DRUGS (1)
  1. AXICABTAGENE CILOLEUCEL [Suspect]
     Active Substance: AXICABTAGENE CILOLEUCEL
     Indication: B-CELL LYMPHOMA
     Dosage: UNK
     Route: 042
     Dates: start: 20161122, end: 20161122

REACTIONS (15)
  - Memory impairment [Not Recovered/Not Resolved]
  - Product outer packaging issue [Unknown]
  - Impaired driving ability [Unknown]
  - Mental impairment [Not Recovered/Not Resolved]
  - Immunodeficiency [Not Recovered/Not Resolved]
  - Communication disorder [Recovered/Resolved]
  - Oxygen saturation decreased [Unknown]
  - Asthenia [Recovered/Resolved with Sequelae]
  - Neurotoxicity [Unknown]
  - Gait disturbance [Recovered/Resolved with Sequelae]
  - Fatigue [Unknown]
  - Tremor [Recovered/Resolved]
  - Aphasia [Not Recovered/Not Resolved]
  - Coma [Recovered/Resolved]
  - Motor dysfunction [Recovered/Resolved]

NARRATIVE: CASE EVENT DATE: 20161122
